FAERS Safety Report 21900366 (Version 2)
Quarter: 2024Q1

REPORT INFORMATION
  Report Type: Spontaneous
  Country: US (occurrence: US)
  Receive Date: 20230123
  Receipt Date: 20240206
  Transmission Date: 20240410
  Serious: No
  Sender: FDA-Public Use
  Company Number: TEVA-US-01Dec2022-49061(V1)

PATIENT
  Sex: Male
  Weight: 80.726 kg

DRUGS (1)
  1. BENDEKA [Suspect]
     Active Substance: BENDAMUSTINE HYDROCHLORIDE
     Indication: Mantle cell lymphoma
     Dosage: UNK
     Route: 042
     Dates: start: 20221128

REACTIONS (9)
  - Lethargy [Not Recovered/Not Resolved]
  - Flushing [Unknown]
  - Ocular hyperaemia [Unknown]
  - Influenza like illness [Unknown]
  - Apathy [Unknown]
  - Oropharyngeal pain [Recovering/Resolving]
  - Dizziness [Unknown]
  - Fatigue [Not Recovered/Not Resolved]
  - Cough [Unknown]

NARRATIVE: CASE EVENT DATE: 20220101
